FAERS Safety Report 24856176 (Version 2)
Quarter: 2025Q1

REPORT INFORMATION
  Report Type: Spontaneous
  Country: US (occurrence: US)
  Receive Date: 20250117
  Receipt Date: 20250123
  Transmission Date: 20250408
  Serious: Yes (Other)
  Sender: SANOFI AVENTIS
  Company Number: US-MLMSERVICE-20250107-PI338170-00306-6

PATIENT
  Age: 44 Year
  Sex: Male

DRUGS (3)
  1. LEFLUNOMIDE [Suspect]
     Active Substance: LEFLUNOMIDE
     Indication: Renal and pancreas transplant
  2. TACROLIMUS [Suspect]
     Active Substance: TACROLIMUS
     Indication: Renal and pancreas transplant
  3. MYCOPHENOLIC ACID [Suspect]
     Active Substance: MYCOPHENOLIC ACID
     Indication: Renal and pancreas transplant

REACTIONS (4)
  - Transitional cell carcinoma [Unknown]
  - Haematuria [Unknown]
  - Abdominal pain [Unknown]
  - Hydronephrosis [Unknown]
